FAERS Safety Report 10211275 (Version 1)
Quarter: 2014Q2

REPORT INFORMATION
  Report Type: Report from Study
  Country: MX (occurrence: MX)
  Receive Date: 20140602
  Receipt Date: 20140602
  Transmission Date: 20141212
  Serious: Yes (Other)
  Sender: FDA-Public Use
  Company Number: PHHY2014MX067222

PATIENT
  Age: 89 Year
  Sex: Female

DRUGS (2)
  1. EXELON PATCH [Suspect]
     Dosage: 4.6 MG (PATCH 5CM2), DAILY
     Route: 062
  2. EXELON PATCH [Suspect]
     Dosage: 9.5 MG (PATCH 10CM2), DAILY
     Route: 062

REACTIONS (1)
  - Cataract [Unknown]
